FAERS Safety Report 6415754-2 (Version None)
Quarter: 2009Q4

REPORT INFORMATION
  Report Type: 
  Country: None (occurrence: None)
  Receive Date: 20091022
  Receipt Date: 20091007
  Transmission Date: 20100525
  Serious: Yes (Hospitalization)
  Sender: FDA-Public Use
  Company Number: 2008EU001935

PATIENT
  Age: 11 Year
  Sex: Female

DRUGS (3)
  1. TACROLIMUS [Suspect]
     Indication: DERMATITIS ATOPIC
     Dosage: 0.03 %, PRN, TOPICAL
     Route: 061
     Dates: start: 20050118, end: 20050314
  2. TANNOLACT (UREA-SODIUM CRESOLSULFONIC ACID) [Concomitant]
  3. CREMEAL [Concomitant]

REACTIONS (3)
  - APPENDICITIS [None]
  - CHEST PAIN [None]
  - PELVIC PAIN [None]
